FAERS Safety Report 8382703-X (Version None)
Quarter: 2012Q2

REPORT INFORMATION
  Report Type: 
  Country: None (occurrence: None)
  Receive Date: 20120524
  Receipt Date: 20120308
  Transmission Date: 20120825
  Serious: No
  Sender: FDA-Public Use
  Company Number: US-ALLERGAN-1203325US

PATIENT
  Age: 90 Year
  Sex: Female

DRUGS (3)
  1. LASTACAFT [Suspect]
     Indication: EYE PRURITUS
     Dosage: 1 DROP TO BOTH EYES, ONCE A DAY
     Route: 047
     Dates: start: 20120307
  2. LASTACAFT [Suspect]
     Indication: EYE IRRITATION
  3. LASTACAFT [Suspect]
     Indication: EYE SWELLING

REACTIONS (4)
  - FEELING COLD [None]
  - FATIGUE [None]
  - BODY TEMPERATURE INCREASED [None]
  - ASTHENIA [None]
